FAERS Safety Report 11613556 (Version 2)
Quarter: 2015Q4

REPORT INFORMATION
  Report Type: Report from Study
  Country: BR (occurrence: BR)
  Receive Date: 20151008
  Receipt Date: 20151117
  Transmission Date: 20160304
  Serious: Yes (Other)
  Sender: FDA-Public Use
  Company Number: BR-BAYER-2015-436047

PATIENT
  Age: 38 Year
  Sex: Female
  Weight: 94 kg

DRUGS (3)
  1. BETAFERON [Suspect]
     Active Substance: INTERFERON BETA-1B
     Indication: SECONDARY PROGRESSIVE MULTIPLE SCLEROSIS
     Dosage: 1 ML, QOD
     Route: 058
     Dates: start: 200507, end: 201107
  2. BETAFERON [Suspect]
     Active Substance: INTERFERON BETA-1B
     Indication: SECONDARY PROGRESSIVE MULTIPLE SCLEROSIS
     Dosage: UNK
     Dates: start: 201407, end: 201407
  3. METROZOL [Concomitant]
     Indication: BREAST CANCER
     Dosage: UNK
     Route: 048
     Dates: start: 201107

REACTIONS (10)
  - Paraesthesia [None]
  - Confusional state [Recovering/Resolving]
  - Multiple sclerosis relapse [None]
  - Seizure [Not Recovered/Not Resolved]
  - Irritability [Recovering/Resolving]
  - Dysarthria [None]
  - Memory impairment [Recovering/Resolving]
  - Weight increased [None]
  - Muscular weakness [None]
  - Steatohepatitis [Recovering/Resolving]

NARRATIVE: CASE EVENT DATE: 2005
